FAERS Safety Report 23279635 (Version 3)
Quarter: 2023Q4

REPORT INFORMATION
  Report Type: Spontaneous
  Country: US (occurrence: US)
  Receive Date: 20231210
  Receipt Date: 20231214
  Transmission Date: 20240109
  Serious: No
  Sender: FDA-Public Use
  Company Number: US-AMGEN-USASP2023220226

PATIENT
  Age: 67 Year
  Sex: Male

DRUGS (4)
  1. REPATHA [Suspect]
     Active Substance: EVOLOCUMAB
     Indication: Hyperlipidaemia
     Dosage: 420 MILLIGRAM/ 3.5 ML, QMO
     Route: 058
     Dates: start: 2019
  2. REPATHA [Suspect]
     Active Substance: EVOLOCUMAB
     Indication: Blood cholesterol increased
  3. REPATHA [Suspect]
     Active Substance: EVOLOCUMAB
     Indication: Peripheral arterial occlusive disease
  4. REPATHA [Suspect]
     Active Substance: EVOLOCUMAB
     Indication: Acute myocardial infarction

REACTIONS (2)
  - Product preparation error [Unknown]
  - Drug dose omission by device [Unknown]

NARRATIVE: CASE EVENT DATE: 20231207
